FAERS Safety Report 6794096-X (Version None)
Quarter: 2010Q2

REPORT INFORMATION
  Report Type: 
  Country: None (occurrence: None)
  Receive Date: 20100624
  Receipt Date: 20091013
  Transmission Date: 20101027
  Serious: Yes (Hospitalization, Other)
  Sender: FDA-Public Use
  Company Number: DE-PFIZER INC-2009282211

PATIENT
  Age: 84 Year
  Sex: Male
  Weight: 74 kg

DRUGS (4)
  1. AMPICILLIN AND SULBACTAM [Suspect]
     Indication: PNEUMONIA
     Dosage: 1500 MG, 3X/DAY
     Route: 042
     Dates: start: 20071127, end: 20071205
  2. AMPICILLIN AND SULBACTAM [Suspect]
     Dosage: 1500 MG, 1X/DAY
     Route: 042
     Dates: start: 20071206, end: 20071206
  3. PANTOZOL [Suspect]
     Dosage: 40 MG, 2X/DAY
     Route: 042
     Dates: start: 20071127, end: 20071127
  4. PANTOZOL [Suspect]
     Dosage: 40 MG, 1X/DAY
     Route: 042
     Dates: start: 20071128, end: 20071203

REACTIONS (1)
  - HEPATITIS ACUTE [None]
